FAERS Safety Report 17170218 (Version 3)
Quarter: 2020Q1

REPORT INFORMATION
  Report Type: Spontaneous
  Country: IL (occurrence: IL)
  Receive Date: 20191218
  Receipt Date: 20200108
  Transmission Date: 20200409
  Serious: Yes (Other)
  Sender: FDA-Public Use
  Company Number: IL-PFIZER INC-2019542314

PATIENT
  Age: 55 Year
  Sex: Female
  Weight: 120 kg

DRUGS (5)
  1. TALTZ [Concomitant]
     Active Substance: IXEKIZUMAB
     Indication: PSORIATIC ARTHROPATHY
     Dosage: UNK
  2. SALAZOPYRIN [Concomitant]
     Active Substance: SULFASALAZINE
  3. ARAVA [Concomitant]
     Active Substance: LEFLUNOMIDE
  4. XELJANZ [Suspect]
     Active Substance: TOFACITINIB CITRATE
     Indication: PSORIATIC ARTHROPATHY
     Dosage: 5 MG, 2X/DAY
     Route: 048
     Dates: start: 201905, end: 20191028
  5. PROLIA [Concomitant]
     Active Substance: DENOSUMAB

REACTIONS (1)
  - Deep vein thrombosis [Unknown]

NARRATIVE: CASE EVENT DATE: 20190715
